FAERS Safety Report 21521324 (Version 3)
Quarter: 2023Q1

REPORT INFORMATION
  Report Type: Report from Study
  Country: US (occurrence: US)
  Receive Date: 20221028
  Receipt Date: 20230227
  Transmission Date: 20230418
  Serious: Yes (Hospitalization)
  Sender: FDA-Public Use
  Company Number: US-ABBVIE-4148658

PATIENT
  Age: 61 Year
  Sex: Female

DRUGS (4)
  1. HUMIRA [Suspect]
     Active Substance: ADALIMUMAB
     Indication: Psoriatic arthropathy
     Dosage: CF
     Route: 058
  2. HUMIRA [Suspect]
     Active Substance: ADALIMUMAB
     Route: 058
     Dates: start: 20220908
  3. PFIZER-BIONTECH COVID-19 VACCINE [Concomitant]
     Active Substance: TOZINAMERAN
     Indication: COVID-19 immunisation
  4. METHOTREXATE [Concomitant]
     Active Substance: METHOTREXATE
     Indication: Product used for unknown indication

REACTIONS (13)
  - COVID-19 [Recovering/Resolving]
  - Fatigue [Not Recovered/Not Resolved]
  - Upper respiratory tract infection [Recovering/Resolving]
  - Uterovaginal prolapse [Unknown]
  - Pneumonia [Recovering/Resolving]
  - Hypersomnia [Unknown]
  - Surgery [Not Recovered/Not Resolved]
  - Illness [Unknown]
  - SARS-CoV-2 test positive [Recovering/Resolving]
  - Headache [Unknown]
  - Cough [Not Recovered/Not Resolved]
  - Bladder prolapse [Unknown]
  - Sinus congestion [Unknown]

NARRATIVE: CASE EVENT DATE: 20220901
